FAERS Safety Report 13159744 (Version 2)
Quarter: 2017Q1

REPORT INFORMATION
  Report Type: Report from Study
  Country: None (occurrence: PT)
  Receive Date: 20170127
  Receipt Date: 20170215
  Transmission Date: 20170428
  Serious: Yes (Hospitalization, Other)
  Sender: FDA-Public Use
  Company Number: PT-ABBVIE-17P-130-1846839-00

PATIENT
  Age: 40 Year
  Sex: Female

DRUGS (4)
  1. LEPICORTINOLO [Concomitant]
     Active Substance: PREDNISOLONE
     Indication: RHEUMATOID ARTHRITIS
     Dosage: MINIMUM DOSE
     Route: 048
     Dates: start: 20161110, end: 201701
  2. HUMIRA [Suspect]
     Active Substance: ADALIMUMAB
     Indication: CROHN^S DISEASE
     Route: 058
     Dates: start: 201401, end: 201608
  3. HUMIRA [Suspect]
     Active Substance: ADALIMUMAB
     Indication: CROHN^S DISEASE
     Route: 058
     Dates: start: 201609, end: 20161223
  4. LEPICORTINOLO [Concomitant]
     Active Substance: PREDNISOLONE
     Dosage: INCREASED DOSE
     Route: 048
     Dates: start: 201701

REACTIONS (6)
  - Pain in extremity [Not Recovered/Not Resolved]
  - Vasodilatation [Not Recovered/Not Resolved]
  - Deep vein thrombosis [Recovered/Resolved]
  - Lupus-like syndrome [Not Recovered/Not Resolved]
  - Nodule [Not Recovered/Not Resolved]
  - Thrombosis [Not Recovered/Not Resolved]

NARRATIVE: CASE EVENT DATE: 20161226
